FAERS Safety Report 10594186 (Version 1)
Quarter: 2014Q4

REPORT INFORMATION
  Report Type: Spontaneous
  Country: US (occurrence: US)
  Receive Date: 20141119
  Receipt Date: 20141119
  Transmission Date: 20150529
  Serious: No
  Sender: FDA-Public Use
  Company Number: US-BANPHARM-20142761

PATIENT
  Age: 64 Year
  Sex: Female

DRUGS (1)
  1. ERGOCALCIFEROL CAPSULES 1.25 MG [Suspect]
     Active Substance: ERGOCALCIFEROL
     Dosage: TWICE A WEEK,
     Route: 048
     Dates: start: 20140527

REACTIONS (7)
  - Nausea [Recovered/Resolved]
  - Dizziness [Recovered/Resolved]
  - Headache [Unknown]
  - Pruritus [Recovered/Resolved]
  - Dyspepsia [Unknown]
  - Diarrhoea [Recovered/Resolved]
  - Pollakiuria [Unknown]
